FAERS Safety Report 10054799 (Version 4)
Quarter: 2014Q2

REPORT INFORMATION
  Report Type: Spontaneous
  Country: US (occurrence: US)
  Receive Date: 20140402
  Receipt Date: 20140611
  Transmission Date: 20141212
  Serious: Yes (Other)
  Sender: FDA-Public Use
  Company Number: US-AMGEN-USASP2014019051

PATIENT
  Age: 70 Year
  Sex: Female
  Weight: 94.33 kg

DRUGS (7)
  1. ENBREL [Suspect]
     Indication: RHEUMATOID ARTHRITIS
     Dosage: 50 MG, QWK
     Route: 058
     Dates: start: 20130703
  2. MTX                                /00113801/ [Concomitant]
     Dosage: UNK MG, QWK
  3. PLAQUENIL                          /00072602/ [Concomitant]
     Dosage: UNK
  4. LYRICA [Concomitant]
     Dosage: UNK
  5. LOPRESSOR [Concomitant]
     Dosage: UNK
  6. GLYBURIDE [Concomitant]
     Dosage: UNK
  7. FOLIC ACID [Concomitant]
     Dosage: UNK

REACTIONS (16)
  - Rheumatoid arthritis [Recovered/Resolved]
  - Respiratory tract infection [Recovered/Resolved]
  - Pain [Recovered/Resolved]
  - Feeling of body temperature change [Recovered/Resolved]
  - Oropharyngeal pain [Recovered/Resolved]
  - Ear discomfort [Recovered/Resolved]
  - Cough [Recovered/Resolved]
  - Body temperature increased [Recovered/Resolved]
  - Blood glucose decreased [Recovered/Resolved]
  - Tremor [Recovered/Resolved]
  - Chills [Recovered/Resolved]
  - Arthralgia [Recovered/Resolved]
  - Nasopharyngitis [Recovered/Resolved]
  - Bronchitis [Recovered/Resolved]
  - Sinusitis [Recovered/Resolved]
  - Injection site pain [Recovered/Resolved]
